FAERS Safety Report 7705033-5 (Version None)
Quarter: 2011Q3

REPORT INFORMATION
  Report Type: 
  Country: None (occurrence: None)
  Receive Date: 20110823
  Receipt Date: 20110817
  Transmission Date: 20111222
  Serious: Yes (Other)
  Sender: FDA-Public Use
  Company Number: US-PFIZER INC-2011154183

PATIENT
  Sex: Male
  Weight: 90.703 kg

DRUGS (6)
  1. YOHIMBE BARK [Concomitant]
     Indication: SEXUAL DYSFUNCTION
     Dosage: 1000 MG, UNK
  2. CHANTIX [Suspect]
     Indication: SMOKING CESSATION THERAPY
     Dosage: 0.5MG DAILY
     Route: 048
     Dates: start: 20110101
  3. HYDROCHLOROTHIAZIDE [Concomitant]
     Indication: HYPERTENSION
     Dosage: 25MG HALF A TABLET DAILY
     Route: 048
  4. CHANTIX [Suspect]
     Dosage: 1 MG, 2X/DAY
     Route: 048
     Dates: start: 20110101
  5. LISINOPRIL [Concomitant]
     Indication: HYPERTENSION
     Dosage: 40MG DAILY
  6. VARDENAFIL [Concomitant]
     Indication: SEXUAL DYSFUNCTION
     Dosage: 10 MG, AS NEEDED
     Route: 048

REACTIONS (4)
  - ACCIDENT [None]
  - FOOT FRACTURE [None]
  - MALAISE [None]
  - HYPERTENSION [None]
